FAERS Safety Report 9705863 (Version 2)
Quarter: 2013Q4

REPORT INFORMATION
  Report Type: Report from Study
  Country: JP (occurrence: JP)
  Receive Date: 20131122
  Receipt Date: 20131122
  Transmission Date: 20140711
  Serious: Yes (Other)
  Sender: FDA-Public Use
  Company Number: JP-TAKEDA-2013TJP001639

PATIENT
  Age: 70 Year
  Sex: Male
  Weight: 49 kg

DRUGS (8)
  1. LANSOPRAZOLE [Suspect]
     Indication: PROPHYLAXIS AGAINST GASTROINTESTINAL ULCER
     Dosage: 15 MG, UNK
     Route: 048
     Dates: start: 20120705
  2. BAYASPIRIN [Concomitant]
     Indication: THROMBOSIS PROPHYLAXIS
     Dosage: 100 MG, 1 DAYS
     Route: 048
     Dates: start: 20120705
  3. ITOROL [Concomitant]
     Indication: MYOCARDIAL INFARCTION
     Dosage: 10 MG, 1DAYS
     Route: 048
     Dates: start: 20120705
  4. ALDACTONE A [Concomitant]
     Dosage: 50 MG, 1 DAYS
     Route: 048
     Dates: start: 20120705
  5. LIVALO [Concomitant]
     Dosage: 2 MG, 1 DAYS
     Route: 048
     Dates: start: 20120705
  6. WARFARIN [Concomitant]
     Indication: MESENTERIC ARTERY EMBOLISM
     Dosage: 2 MG, 1 DAYS
     Route: 048
     Dates: start: 20120717
  7. PLAVIX [Concomitant]
     Indication: MYOCARDIAL INFARCTION
     Dosage: 50 MG, 1 DAYS
     Route: 048
     Dates: start: 20120831
  8. FRANDOL TAPE [Concomitant]
     Indication: MYOCARDIAL INFARCTION
     Dosage: 40 MG, UNK
     Route: 062
     Dates: start: 20120808

REACTIONS (7)
  - Cardiac failure [Recovering/Resolving]
  - Muscle spasms [Recovering/Resolving]
  - Hypoaesthesia [Not Recovered/Not Resolved]
  - Nausea [Recovering/Resolving]
  - Hypertension [Recovering/Resolving]
  - Diabetes mellitus [Recovering/Resolving]
  - Constipation [Recovering/Resolving]
